FAERS Safety Report 6134004-8 (Version None)
Quarter: 2009Q1

REPORT INFORMATION
  Report Type: 
  Country: None (occurrence: None)
  Receive Date: 20090326
  Receipt Date: 20090320
  Transmission Date: 20090719
  Serious: No
  Sender: FDA-Public Use
  Company Number: US-B.I. PHARMACEUTICALS,INC./RIDGEFIELD-2009-BP-03593BP

PATIENT
  Sex: Female

DRUGS (6)
  1. ZANTAC 150 [Suspect]
     Dosage: 300MG
     Route: 048
  2. ZANTAC 150 [Suspect]
     Dosage: 450MG
     Route: 048
     Dates: start: 20090320, end: 20090320
  3. LISINOPRIL [Concomitant]
     Indication: HYPERTENSION
  4. METAMUCIL [Concomitant]
     Indication: DIVERTICULITIS
  5. NASONEX SPRAY [Concomitant]
     Indication: RHINITIS ALLERGIC
  6. CLARITIN [Concomitant]
     Indication: HYPERSENSITIVITY

REACTIONS (3)
  - ACCIDENTAL OVERDOSE [None]
  - FEELING JITTERY [None]
  - INSOMNIA [None]
